FAERS Safety Report 8424087-4 (Version None)
Quarter: 2012Q2

REPORT INFORMATION
  Report Type: 
  Country: None (occurrence: None)
  Receive Date: 20120608
  Receipt Date: 20110426
  Transmission Date: 20120825
  Serious: No
  Sender: FDA-Public Use
  Company Number: US-ASTRAZENECA-2011SE23961

PATIENT
  Age: 77 Year
  Sex: Female
  Weight: 63.5 kg

DRUGS (7)
  1. PULMICORT FLEXHALER [Suspect]
     Indication: CHRONIC OBSTRUCTIVE PULMONARY DISEASE
     Dosage: TWO PUFFS ONCE A DAY
     Route: 055
  2. OMEPRAZOLE [Suspect]
     Indication: GASTROOESOPHAGEAL REFLUX DISEASE
     Route: 048
  3. SPIRONOLACTONE [Concomitant]
  4. SPIRIVA [Concomitant]
  5. CARVEDILOL [Concomitant]
  6. BENAZEPRIL HYDROCHLORIDE [Concomitant]
  7. PROAIR HFA [Concomitant]

REACTIONS (2)
  - BRONCHITIS [None]
  - NAUSEA [None]
